FAERS Safety Report 23419320 (Version 2)
Quarter: 2024Q1

REPORT INFORMATION
  Report Type: Spontaneous
  Country: JP (occurrence: JP)
  Receive Date: 20240118
  Receipt Date: 20240216
  Transmission Date: 20240410
  Serious: No
  Sender: FDA-Public Use
  Company Number: JP-MTPC-MTPC2024-0000906

PATIENT
  Age: 6 Decade
  Sex: Female

DRUGS (1)
  1. REMICADE [Suspect]
     Active Substance: INFLIXIMAB
     Indication: Psoriatic arthropathy
     Dosage: ADMINISTERED 3 TIMES
     Route: 041

REACTIONS (1)
  - Infusion related reaction [Unknown]
